FAERS Safety Report 7522121-7 (Version None)
Quarter: 2011Q2

REPORT INFORMATION
  Report Type: 
  Country: None (occurrence: None)
  Receive Date: 20110603
  Receipt Date: 20110522
  Transmission Date: 20111010
  Serious: Yes (Hospitalization, Other)
  Sender: FDA-Public Use
  Company Number: BE-JNJFOC-20110510202

PATIENT
  Age: 56 Year
  Sex: Female
  Weight: 84 kg

DRUGS (5)
  1. GOLIMUMAB [Suspect]
     Indication: RHEUMATOID ARTHRITIS
     Route: 058
     Dates: start: 20101004
  2. TRIAMCINOLONE [Suspect]
     Indication: RHEUMATOID ARTHRITIS
     Route: 048
     Dates: start: 20070514
  3. CHLOROQUINE DIPHOSPHATE [Suspect]
     Indication: RHEUMATOID ARTHRITIS
     Route: 048
     Dates: start: 20070514
  4. METHOTREXATE [Suspect]
     Indication: RHEUMATOID ARTHRITIS
     Route: 048
     Dates: start: 20070514, end: 20110220
  5. GOLIMUMAB [Suspect]
     Route: 058
     Dates: start: 20110313

REACTIONS (2)
  - ESCHERICHIA BACTERAEMIA [None]
  - URINARY TRACT INFECTION [None]
